FAERS Safety Report 6056350-9 (Version None)
Quarter: 2009Q1

REPORT INFORMATION
  Report Type: 
  Country: None (occurrence: None)
  Receive Date: 20090129
  Receipt Date: 20090122
  Transmission Date: 20090719
  Serious: Yes (Other)
  Sender: FDA-Public Use
  Company Number: PK-BRISTOL-MYERS SQUIBB COMPANY-14480552

PATIENT
  Age: 20 Year
  Sex: Male

DRUGS (7)
  1. CYCLOPHOSPHAMIDE [Suspect]
     Indication: NON-HODGKIN'S LYMPHOMA
  2. VINCRISTINE SULFATE [Suspect]
     Indication: NON-HODGKIN'S LYMPHOMA
  3. DOXORUBICIN [Suspect]
     Indication: NON-HODGKIN'S LYMPHOMA
  4. CYTARABINE [Suspect]
     Indication: NON-HODGKIN'S LYMPHOMA
  5. DEXAMETHASONE [Suspect]
     Indication: NON-HODGKIN'S LYMPHOMA
  6. METHOTREXATE [Suspect]
     Indication: NON-HODGKIN'S LYMPHOMA
  7. GRANULOCYTE CSF [Suspect]
     Indication: NEUTROPENIA

REACTIONS (2)
  - NEUTROPENIA [None]
  - SPLENIC RUPTURE [None]
